FAERS Safety Report 9108344 (Version 2)
Quarter: 2013Q2

REPORT INFORMATION
  Report Type: Report from Study
  Country: DE (occurrence: DE)
  Receive Date: 20130222
  Receipt Date: 20130426
  Transmission Date: 20140414
  Serious: Yes (Hospitalization, Other)
  Sender: FDA-Public Use
  Company Number: DE-ABBOTT-13P-062-1052048-00

PATIENT
  Age: 46 Year
  Sex: Male
  Weight: 96 kg

DRUGS (11)
  1. HUMIRA [Suspect]
     Indication: CROHN^S DISEASE
     Route: 058
     Dates: end: 201212
  2. PSYCHOPHARMACEUTICAL [Concomitant]
     Indication: PRODUCT USED FOR UNKNOWN INDICATION
  3. KALINOR [Concomitant]
     Indication: PRODUCT USED FOR UNKNOWN INDICATION
  4. CITALOPRAM [Concomitant]
     Indication: PRODUCT USED FOR UNKNOWN INDICATION
  5. RAMIPRIL [Concomitant]
     Indication: PRODUCT USED FOR UNKNOWN INDICATION
  6. OMEPRAZOL [Concomitant]
     Indication: PRODUCT USED FOR UNKNOWN INDICATION
  7. ZIPRASIDONE [Concomitant]
     Indication: PRODUCT USED FOR UNKNOWN INDICATION
  8. CHLOROPROTEXIN [Concomitant]
     Indication: PRODUCT USED FOR UNKNOWN INDICATION
  9. BENURON [Concomitant]
     Indication: PRODUCT USED FOR UNKNOWN INDICATION
  10. NOVALGIN [Concomitant]
     Indication: PRODUCT USED FOR UNKNOWN INDICATION
  11. MAGNESIOCARD [Concomitant]
     Indication: PRODUCT USED FOR UNKNOWN INDICATION
     Dosage: TABLETS ONCE DAILY

REACTIONS (6)
  - Small intestinal stenosis [Recovering/Resolving]
  - Large intestinal stenosis [Recovered/Resolved]
  - Abdominal adhesions [Recovered/Resolved]
  - Coagulopathy [Unknown]
  - Procedural haemorrhage [Recovered/Resolved]
  - Haemoglobin decreased [Recovered/Resolved]
